FAERS Safety Report 8165656-9 (Version None)
Quarter: 2012Q1

REPORT INFORMATION
  Report Type: 
  Country: None (occurrence: None)
  Receive Date: 20120227
  Receipt Date: 20120215
  Transmission Date: 20120608
  Serious: Yes (Hospitalization)
  Sender: FDA-Public Use
  Company Number: FR-BRISTOL-MYERS SQUIBB COMPANY-16404857

PATIENT
  Age: 65 Year
  Sex: Female

DRUGS (4)
  1. METFORMIN HCL [Suspect]
     Indication: TYPE 2 DIABETES MELLITUS
     Route: 048
     Dates: start: 20100601
  2. ONGLYZA [Suspect]
     Indication: TYPE 2 DIABETES MELLITUS
     Route: 048
     Dates: start: 20100601
  3. TRIMEPRAZINE TARTRATE [Concomitant]
     Dates: start: 20070101, end: 20110101
  4. ZYPREXA [Concomitant]
     Dates: start: 20070101, end: 20110101

REACTIONS (1)
  - PRURITUS GENERALISED [None]
